FAERS Safety Report 19218259 (Version 1)
Quarter: 2021Q2

REPORT INFORMATION
  Report Type: Spontaneous
  Country: US (occurrence: US)
  Receive Date: 20210505
  Receipt Date: 20210505
  Transmission Date: 20210717
  Serious: Yes (Hospitalization)
  Sender: FDA-Public Use
  Company Number: US-UNICHEM PHARMACEUTICALS (USA) INC-UCM202104-000386

PATIENT
  Age: 15 Year
  Sex: Female

DRUGS (5)
  1. ALLOPURINOL. [Suspect]
     Active Substance: ALLOPURINOL
     Indication: OVERDOSE
     Dosage: 4.5 G
  2. BENZONATATE. [Suspect]
     Active Substance: BENZONATATE
     Indication: OVERDOSE
     Dosage: 1G
  3. TRAZODONE [Suspect]
     Active Substance: TRAZODONE HYDROCHLORIDE
     Indication: OVERDOSE
     Dosage: 2 G
  4. EFFEXOR [Suspect]
     Active Substance: VENLAFAXINE HYDROCHLORIDE
     Indication: OVERDOSE
     Dosage: 2.1 G
  5. AMLODIPINE [Suspect]
     Active Substance: AMLODIPINE BESYLATE
     Indication: OVERDOSE
     Dosage: 400 MG

REACTIONS (4)
  - Vasoplegia syndrome [Recovered/Resolved]
  - Overdose [Unknown]
  - Metabolic acidosis [Recovered/Resolved]
  - Hypotension [Recovered/Resolved]
